FAERS Safety Report 23382445 (Version 1)
Quarter: 2024Q1

REPORT INFORMATION
  Report Type: Spontaneous
  Country: US (occurrence: None)
  Receive Date: 20240108
  Receipt Date: 20240108
  Transmission Date: 20240409
  Serious: Yes (Other)
  Sender: FDA-Public Use
  Company Number: None

PATIENT
  Age: 62 Year
  Sex: Female
  Weight: 60.75 kg

DRUGS (1)
  1. RALOXIFENE [Suspect]
     Active Substance: RALOXIFENE
     Indication: Osteopenia
     Dosage: 1 TABLET ORAL
     Route: 048
     Dates: start: 20210401, end: 20230201

REACTIONS (2)
  - Thyroid disorder [None]
  - Thyroid function test abnormal [None]

NARRATIVE: CASE EVENT DATE: 20210325
